FAERS Safety Report 7018372-0 (Version None)
Quarter: 2010Q4

REPORT INFORMATION
  Report Type: 
  Country: None (occurrence: None)
  Receive Date: 20100928
  Receipt Date: 20100915
  Transmission Date: 20110411
  Serious: Yes (Hospitalization, Disabling, Other)
  Sender: FDA-Public Use
  Company Number: PHEH2007US02885

PATIENT
  Sex: Male

DRUGS (39)
  1. ZOMETA [Suspect]
  2. ASMANEX TWISTHALER [Concomitant]
  3. COMBIVENT                               /GFR/ [Suspect]
  4. ZETIA [Concomitant]
  5. ADVAIR HFA [Concomitant]
  6. LASIX [Concomitant]
  7. CELEBREX [Concomitant]
  8. XELODA [Concomitant]
  9. LAPATINIB [Concomitant]
  10. METHOTREXATE [Concomitant]
  11. NEXIUM [Concomitant]
  12. DIFLUCAN [Concomitant]
  13. HERCEPTIN [Concomitant]
  14. FISH OIL [Concomitant]
  15. SPIRIVA [Concomitant]
  16. PREDNISONE [Concomitant]
  17. DOXIL [Concomitant]
  18. MULTI-VITAMINS [Concomitant]
  19. IBUPROFEN (ADVIL) [Concomitant]
  20. CHANTIX [Concomitant]
  21. DECADRON [Concomitant]
  22. VITAMIN B COMPLEX CAP [Concomitant]
  23. THIAMINE HCL [Concomitant]
  24. CIPRO [Concomitant]
     Dosage: 750 MG, BID
     Route: 048
  25. DURAGESIC-100 [Concomitant]
  26. PROTONIX [Concomitant]
  27. MEGACE [Concomitant]
     Dosage: 400 MG, BID
     Route: 048
  28. REGLAN [Concomitant]
     Dosage: 10 MG, BID
  29. AMBIEN [Concomitant]
  30. LORTAB [Concomitant]
  31. TYLENOL [Concomitant]
  32. SOLU-MEDROL [Concomitant]
     Dosage: 40 MG, Q6H
  33. XOPENEX [Concomitant]
  34. NICOTINE [Concomitant]
  35. XANAX [Concomitant]
  36. FOLIC ACID [Concomitant]
  37. NEURONTIN [Concomitant]
  38. ROBITUSSIN ^WYETH^ [Concomitant]
  39. ARIXTRA [Concomitant]

REACTIONS (61)
  - ABDOMINAL HERNIA [None]
  - ABDOMINAL PAIN [None]
  - ADRENAL INSUFFICIENCY [None]
  - AMNESIA [None]
  - ANHEDONIA [None]
  - ANXIETY [None]
  - AORTIC VALVE INCOMPETENCE [None]
  - ARTHRALGIA [None]
  - ASTHENIA [None]
  - ASTHMA [None]
  - ATELECTASIS [None]
  - BENIGN PROSTATIC HYPERPLASIA [None]
  - BRONCHIOLITIS [None]
  - BURSITIS [None]
  - CHRONIC OBSTRUCTIVE PULMONARY DISEASE [None]
  - COUGH [None]
  - DECREASED INTEREST [None]
  - DEHYDRATION [None]
  - DERMAL CYST [None]
  - DIARRHOEA [None]
  - DYSPNOEA [None]
  - EXOSTOSIS [None]
  - FATIGUE [None]
  - GASTRITIS [None]
  - GENERAL PHYSICAL HEALTH DETERIORATION [None]
  - GLUCOSE TOLERANCE IMPAIRED [None]
  - HAEMORRHOIDS [None]
  - HYPERCHOLESTEROLAEMIA [None]
  - HYPERPROTEINAEMIA [None]
  - HYPERTENSION [None]
  - HYPOALBUMINAEMIA [None]
  - HYPOTENSION [None]
  - INTERVERTEBRAL DISC DEGENERATION [None]
  - JAW OPERATION [None]
  - LEFT VENTRICULAR DYSFUNCTION [None]
  - LEUKOPENIA [None]
  - LOBAR PNEUMONIA [None]
  - LUNG INFILTRATION [None]
  - LYMPHADENOPATHY [None]
  - MENTAL STATUS CHANGES [None]
  - MITRAL VALVE INCOMPETENCE [None]
  - MULTIPLE INJURIES [None]
  - OEDEMA PERIPHERAL [None]
  - OSTEOARTHRITIS [None]
  - OSTEONECROSIS OF JAW [None]
  - PAIN [None]
  - PERIPHERAL VASCULAR DISORDER [None]
  - PLEURAL EFFUSION [None]
  - POLYP COLORECTAL [None]
  - POLYPECTOMY [None]
  - PSEUDOMONAL SEPSIS [None]
  - PULMONARY EMBOLISM [None]
  - PYREXIA [None]
  - RENAL ATROPHY [None]
  - RETROPERITONEAL LYMPHADENOPATHY [None]
  - RHEUMATOID ARTHRITIS [None]
  - RHINITIS ALLERGIC [None]
  - SCIATICA [None]
  - SINUSITIS [None]
  - TRICUSPID VALVE INCOMPETENCE [None]
  - URINARY TRACT INFECTION [None]
